FAERS Safety Report 5533162-3 (Version None)
Quarter: 2007Q4

REPORT INFORMATION
  Report Type: 
  Country: None (occurrence: None)
  Receive Date: 20071130
  Receipt Date: 20071130
  Transmission Date: 20080405
  Serious: No
  Sender: FDA-Public Use
  Company Number: None

PATIENT
  Age: 63 Year
  Sex: Male
  Weight: 93.441 kg

DRUGS (1)
  1. CLOBETASOL PROPIONATE [Suspect]
     Indication: DERMATITIS CONTACT
     Dosage: TOP
     Route: 061
     Dates: start: 20071112, end: 20071114

REACTIONS (1)
  - RASH PRURITIC [None]
